FAERS Safety Report 7394770-0 (Version None)
Quarter: 2011Q2

REPORT INFORMATION
  Report Type: 
  Country: None (occurrence: None)
  Receive Date: 20110405
  Receipt Date: 20110330
  Transmission Date: 20111010
  Serious: Yes (Death)
  Sender: FDA-Public Use
  Company Number: CO-PFIZER INC-2009291339

PATIENT
  Age: 70 Year
  Sex: Male

DRUGS (2)
  1. MORPHINE SULFATE [Suspect]
     Indication: ANALGESIC THERAPY
     Dosage: UNKNOWN
  2. RELISTOR [Suspect]
     Indication: CONSTIPATION
     Dosage: 8 MG, ALTERNATE DAYS
     Route: 058
     Dates: start: 20090901

REACTIONS (2)
  - BRONCHIAL CARCINOMA [None]
  - DRUG INEFFECTIVE [None]
